FAERS Safety Report 4446284-5 (Version None)
Quarter: 2004Q3

REPORT INFORMATION
  Report Type: 
  Country: None (occurrence: None)
  Receive Date: 20040902
  Receipt Date: 20040818
  Transmission Date: 20050211
  Serious: Yes (Other)
  Sender: FDA-Public Use
  Company Number: B0342822A

PATIENT
  Age: 36 Year
  Sex: Female

DRUGS (1)
  1. THIOGUANINE [Suspect]
     Indication: CROHN'S DISEASE

REACTIONS (7)
  - BLEEDING TIME PROLONGED [None]
  - HEPATIC ENZYME INCREASED [None]
  - RASH PUSTULAR [None]
  - SCRATCH [None]
  - SUBCUTANEOUS HAEMATOMA [None]
  - THROMBOCYTOPENIA [None]
  - WHITE BLOOD CELL COUNT DECREASED [None]
